FAERS Safety Report 6637365-6 (Version None)
Quarter: 2010Q1

REPORT INFORMATION
  Report Type: 
  Country: None (occurrence: None)
  Receive Date: 20100316
  Receipt Date: 20100309
  Transmission Date: 20100710
  Serious: Yes (Hospitalization)
  Sender: FDA-Public Use
  Company Number: PHHO2010ES03107

PATIENT
  Sex: Male
  Weight: 87 kg

DRUGS (7)
  1. CERTICAN [Suspect]
     Indication: LIVER TRANSPLANT
     Dosage: 4MG/DAY
     Route: 048
     Dates: start: 20100205, end: 20100217
  2. TACROLIMUS [Suspect]
     Indication: LIVER TRANSPLANT
     Dosage: UNK
     Route: 048
     Dates: start: 20100103, end: 20100215
  3. TACROLIMUS [Suspect]
     Dosage: 6MG/DAY
     Route: 048
     Dates: start: 20100216, end: 20100216
  4. TACROLIMUS [Suspect]
     Dosage: 8MG/DAY
     Route: 048
     Dates: start: 20100217, end: 20100217
  5. TACROLIMUS [Suspect]
     Dosage: 5 MG, BID
     Route: 048
     Dates: start: 20100218, end: 20100225
  6. TACROLIMUS [Suspect]
     Dosage: 11MG/DAY
     Route: 048
     Dates: start: 20100226, end: 20100226
  7. TACROLIMUS [Suspect]
     Dosage: 6 MG, BID
     Route: 048
     Dates: start: 20100227

REACTIONS (1)
  - ANAEMIA [None]
